FAERS Safety Report 8561595-X (Version None)
Quarter: 2012Q3

REPORT INFORMATION
  Report Type: 
  Country: None (occurrence: None)
  Receive Date: 20120802
  Receipt Date: 20120720
  Transmission Date: 20120928
  Serious: No
  Sender: FDA-Public Use
  Company Number: US-ASTRAZENECA-2012SE51215

PATIENT
  Age: 28 Year
  Sex: Male
  Weight: 81.6 kg

DRUGS (7)
  1. SEROQUEL [Suspect]
     Indication: SCHIZOAFFECTIVE DISORDER
     Route: 048
  2. KLONOPIN [Suspect]
     Indication: SLEEP DISORDER
     Route: 065
  3. LUNESTA [Suspect]
     Indication: SLEEP DISORDER
     Route: 065
  4. SEROQUEL [Suspect]
     Route: 048
     Dates: start: 20120101
  5. KLONOPIN [Suspect]
     Indication: ANXIETY
     Route: 065
  6. SEROQUEL [Suspect]
     Indication: INSOMNIA
     Route: 048
  7. SEROQUEL [Suspect]
     Route: 048
     Dates: start: 20120101

REACTIONS (4)
  - MUSCULAR WEAKNESS [None]
  - INSOMNIA [None]
  - SENSATION OF HEAVINESS [None]
  - ASTHENIA [None]
